FAERS Safety Report 22273911 (Version 2)
Quarter: 2023Q2

REPORT INFORMATION
  Report Type: Spontaneous
  Country: US (occurrence: US)
  Receive Date: 20230502
  Receipt Date: 20230526
  Transmission Date: 20230722
  Serious: Yes (Other)
  Sender: FDA-Public Use
  Company Number: US-SA-SAC20230501001141

PATIENT
  Sex: Female

DRUGS (1)
  1. DUPIXENT [Suspect]
     Active Substance: DUPILUMAB
     Dosage: 300 MG,  FREQUENCY: OTHER
     Route: 058

REACTIONS (8)
  - Angina pectoris [Unknown]
  - Chest pain [Unknown]
  - Headache [Unknown]
  - Asthma [Unknown]
  - Productive cough [Unknown]
  - Vision blurred [Unknown]
  - Drug ineffective [Unknown]
  - Product dose omission in error [Unknown]
